FAERS Safety Report 8382591 (Version 7)
Quarter: 2013Q2

REPORT INFORMATION
  Report Type: Spontaneous
  Country: US (occurrence: US)
  Receive Date: 20120201
  Receipt Date: 20130604
  Transmission Date: 20140414
  Serious: Yes (Hospitalization, Other)
  Sender: FDA-Public Use
  Company Number: US-ROCHE-1034516

PATIENT
  Sex: Male
  Weight: 68.1 kg

DRUGS (1)
  1. ACCUTANE [Suspect]
     Indication: ACNE
     Route: 048

REACTIONS (8)
  - Inflammatory bowel disease [Unknown]
  - Anxiety [Unknown]
  - Crohn^s disease [Unknown]
  - Small intestinal obstruction [Unknown]
  - Anal fistula [Unknown]
  - Anal abscess [Unknown]
  - Rectal fissure [Unknown]
  - Irritable bowel syndrome [Unknown]
